FAERS Safety Report 8234737-3 (Version None)
Quarter: 2012Q1

REPORT INFORMATION
  Report Type: 
  Country: None (occurrence: None)
  Receive Date: 20120321
  Receipt Date: 20120321
  Transmission Date: 20120608
  Serious: Yes (Other)
  Sender: FDA-Public Use
  Company Number: 2011SP010892

PATIENT
  Age: 9 Year

DRUGS (1)
  1. POSACONAZOLE [Suspect]
     Indication: ZYGOMYCOSIS
     Dosage: 400 MG;BID;, 200 MG;QID

REACTIONS (2)
  - SURGERY [None]
  - LIVER DISORDER [None]
